FAERS Safety Report 5525401-X (Version None)
Quarter: 2007Q4

REPORT INFORMATION
  Report Type: 
  Country: None (occurrence: None)
  Receive Date: 20071120
  Receipt Date: 20071109
  Transmission Date: 20080405
  Serious: Yes (Other)
  Sender: FDA-Public Use
  Company Number: 2007S1011457

PATIENT
  Age: 72 Year
  Sex: Male
  Weight: 88.905 kg

DRUGS (2)
  1. FENTANYL TRANSDERMAL SYSTEM [Suspect]
     Indication: BACK PAIN
     Dosage: 25 UG/HR; X1; TRANSDERMAL
     Route: 062
     Dates: start: 20070910, end: 20070911
  2. OXYCODONE WITH APAP [Concomitant]

REACTIONS (4)
  - HYPERSENSITIVITY [None]
  - OEDEMA PERIPHERAL [None]
  - PRURITUS GENERALISED [None]
  - RASH GENERALISED [None]
